FAERS Safety Report 8425235-2 (Version None)
Quarter: 2012Q2

REPORT INFORMATION
  Report Type: 
  Country: None (occurrence: None)
  Receive Date: 20120611
  Receipt Date: 20120530
  Transmission Date: 20120825
  Serious: Yes (Other)
  Sender: FDA-Public Use
  Company Number: US-JNJFOC-20120600351

PATIENT
  Sex: Male

DRUGS (4)
  1. CONCERTA [Suspect]
     Indication: ATTENTION DEFICIT/HYPERACTIVITY DISORDER
     Route: 048
     Dates: start: 20111001, end: 20110101
  2. CONCERTA [Suspect]
     Route: 048
     Dates: start: 20120401
  3. CONCERTA [Suspect]
     Route: 048
     Dates: start: 20110101, end: 20120401
  4. CONCERTA [Suspect]
     Route: 048
     Dates: end: 20110101

REACTIONS (11)
  - FEELING JITTERY [None]
  - DECREASED APPETITE [None]
  - ABNORMAL BEHAVIOUR [None]
  - ROAD TRAFFIC ACCIDENT [None]
  - ADVERSE EVENT [None]
  - VISUAL IMPAIRMENT [None]
  - THERAPEUTIC RESPONSE DECREASED [None]
  - MYDRIASIS [None]
  - ABNORMAL LOSS OF WEIGHT [None]
  - HYPERHIDROSIS [None]
  - FEELING ABNORMAL [None]
